FAERS Safety Report 9175504 (Version 2)
Quarter: 2013Q2

REPORT INFORMATION
  Report Type: Spontaneous
  Country: US (occurrence: US)
  Receive Date: 20130320
  Receipt Date: 20130405
  Transmission Date: 20140414
  Serious: Yes (Death, Life-Threatening, Hospitalization, Other)
  Sender: FDA-Public Use
  Company Number: US-PFIZER INC-2013087922

PATIENT
  Age: 78 Year
  Sex: Male
  Weight: 86.17 kg

DRUGS (3)
  1. ZITHROMAX [Suspect]
     Indication: UPPER RESPIRATORY TRACT INFECTION
     Dosage: 1 DF, 1X/DAY
     Route: 048
     Dates: start: 20121001, end: 20121005
  2. LIPITOR [Concomitant]
     Indication: CARDIAC DISORDER
     Dosage: UNK
  3. INFLUENZA VACCINE [Concomitant]
     Indication: IMMUNISATION
     Dosage: SINGLE DOSE
     Dates: start: 20121005, end: 20121005

REACTIONS (5)
  - Ventricular fibrillation [Fatal]
  - Cardiac arrest [Fatal]
  - Arrhythmia [Fatal]
  - Anoxia [Fatal]
  - Cardiac valve disease [Fatal]
